FAERS Safety Report 9412658 (Version 2)
Quarter: 2017Q1

REPORT INFORMATION
  Report Type: Report from Study
  Country: US (occurrence: US)
  Receive Date: 20130722
  Receipt Date: 20170228
  Transmission Date: 20170429
  Serious: Yes (Other)
  Sender: FDA-Public Use
  Company Number: US-CELGENEUS-163-50794-13071848

PATIENT

DRUGS (3)
  1. VIDAZA [Suspect]
     Active Substance: AZACITIDINE
     Dosage: 40 MILLIGRAM/MILLILITERS
     Route: 058
  2. VIDAZA [Suspect]
     Active Substance: AZACITIDINE
     Indication: COLORECTAL CANCER METASTATIC
     Dosage: 40 MILLIGRAM/MILLILITERS
     Route: 058
  3. ENTINOSTAT [Suspect]
     Active Substance: ENTINOSTAT
     Indication: COLORECTAL CANCER METASTATIC
     Dosage: 7 MILLIGRAM
     Route: 048

REACTIONS (26)
  - Hyponatraemia [Unknown]
  - Hypoglycaemia [Unknown]
  - Hypocalcaemia [Unknown]
  - Hypokalaemia [Unknown]
  - Decreased appetite [Unknown]
  - Constipation [Unknown]
  - Acidosis [Unknown]
  - Anaemia [Unknown]
  - Vomiting [Unknown]
  - Chest pain [Unknown]
  - Leukopenia [Unknown]
  - Injection site reaction [Unknown]
  - Nausea [Unknown]
  - Thrombocytopenia [Unknown]
  - Diarrhoea [Unknown]
  - Hyperglycaemia [Unknown]
  - Urinary tract obstruction [Unknown]
  - Lymphopenia [Unknown]
  - Neutropenia [Unknown]
  - Dehydration [Unknown]
  - Rash maculo-papular [Unknown]
  - Hypophosphataemia [Unknown]
  - Fatigue [Unknown]
  - Cellulitis [Unknown]
  - Dyspnoea [Unknown]
  - Abdominal pain [Unknown]
